FAERS Safety Report 11625732 (Version 1)
Quarter: 2015Q4

REPORT INFORMATION
  Report Type: Spontaneous
  Country: CN (occurrence: CN)
  Receive Date: 20151013
  Receipt Date: 20151013
  Transmission Date: 20160304
  Serious: Yes (Life-Threatening, Hospitalization)
  Sender: FDA-Public Use
  Company Number: CN-PFIZER INC-2015341697

PATIENT
  Age: 61 Year
  Sex: Female
  Weight: 60 kg

DRUGS (8)
  1. DEPAKINE /00228502/ [Suspect]
     Active Substance: VALPROATE SODIUM
     Indication: EPILEPSY
     Dosage: 0.4 G, 1X/DAY
     Route: 041
     Dates: start: 20150327, end: 20150330
  2. PIPERACILLIN AND TAZOBACTAM [Suspect]
     Active Substance: PIPERACILLIN SODIUM\TAZOBACTAM SODIUM
     Indication: INFECTION
     Dosage: 3.75 G, 3X/DAY
     Route: 041
     Dates: start: 20150418, end: 20150423
  3. DIFLUCAN [Suspect]
     Active Substance: FLUCONAZOLE
     Indication: INFECTION
     Dosage: 0.2 G, 1X/DAY
     Route: 041
     Dates: start: 20150422, end: 20150427
  4. DEPAKINE /00228502/ [Suspect]
     Active Substance: VALPROATE SODIUM
     Indication: EPILEPSY
     Dosage: 0.6 G, 2X/DAY
     Route: 048
     Dates: start: 20150327, end: 20150508
  5. TRILEPTAL [Suspect]
     Active Substance: OXCARBAZEPINE
     Indication: EPILEPSY
     Dosage: 0.3 G, 2X/DAY
     Route: 048
     Dates: start: 20150330, end: 20150512
  6. TAZOCIN [Suspect]
     Active Substance: PIPERACILLIN SODIUM\TAZOBACTAM SODIUM
     Indication: INFECTION
     Dosage: 4.5 G, 3X/DAY
     Route: 041
     Dates: start: 20150416, end: 20150417
  7. MYONAL (MYO) [Suspect]
     Active Substance: EPERISONE HYDROCHLORIDE
     Indication: MUSCULAR WEAKNESS
     Dosage: 50 MG, 3X/DAY
     Route: 048
     Dates: start: 20150226, end: 20150512
  8. SODIUM VALPROATE [Suspect]
     Active Substance: VALPROATE SODIUM
     Indication: EPILEPSY
     Dosage: 0.4 G, 2X/DAY
     Route: 048
     Dates: start: 20150303, end: 20150330

REACTIONS (1)
  - Hepatic failure [Not Recovered/Not Resolved]

NARRATIVE: CASE EVENT DATE: 20150430
